FAERS Safety Report 10638850 (Version 1)
Quarter: 2014Q4

REPORT INFORMATION
  Report Type: Spontaneous
  Country: US (occurrence: US)
  Receive Date: 20141208
  Receipt Date: 20141208
  Transmission Date: 20150529
  Serious: No
  Sender: FDA-Public Use
  Company Number: US-PFIZER INC-2014335530

PATIENT
  Age: 66 Year
  Sex: Female
  Weight: 66 kg

DRUGS (1)
  1. CELEBREX [Suspect]
     Active Substance: CELECOXIB
     Indication: PAIN
     Dosage: UNK

REACTIONS (2)
  - Rash [Recovered/Resolved]
  - Fibromyalgia [Unknown]
